FAERS Safety Report 20513111 (Version 1)
Quarter: 2022Q1

REPORT INFORMATION
  Report Type: Spontaneous
  Country: US (occurrence: None)
  Receive Date: 20220224
  Receipt Date: 20220224
  Transmission Date: 20220423
  Serious: No
  Sender: FDA-Public Use
  Company Number: None

PATIENT
  Age: 60 Year
  Sex: Male
  Weight: 63.5 kg

DRUGS (2)
  1. METHYLPREDNISOLONE [Suspect]
     Active Substance: METHYLPREDNISOLONE
     Indication: Limb injury
     Dosage: OTHER QUANTITY : 21 PK;?
     Route: 048
     Dates: start: 20210722, end: 20210727
  2. METHYLPREDNISOLONE [Suspect]
     Active Substance: METHYLPREDNISOLONE
     Indication: Muscle injury

REACTIONS (8)
  - Nightmare [None]
  - Panic attack [None]
  - Insomnia [None]
  - Hyperventilation [None]
  - Headache [None]
  - Disturbance in attention [None]
  - Hypoaesthesia [None]
  - Confusional state [None]

NARRATIVE: CASE EVENT DATE: 20210723
